FAERS Safety Report 13855139 (Version 1)
Quarter: 2017Q3

REPORT INFORMATION
  Report Type: Spontaneous
  Country: CN (occurrence: CN)
  Receive Date: 20170810
  Receipt Date: 20170810
  Transmission Date: 20171127
  Serious: Yes (Other)
  Sender: FDA-Public Use
  Company Number: CN-CORDEN PHARMA LATINA S.P.A.-CN-2017COR000169

PATIENT
  Age: 58 Year
  Sex: Female

DRUGS (3)
  1. TENIPOSIDE. [Suspect]
     Active Substance: TENIPOSIDE
     Indication: LUNG NEOPLASM MALIGNANT
  2. TRADITIONAL MEDICINE [Suspect]
     Active Substance: HERBALS\HOMEOPATHICS
     Indication: LUNG NEOPLASM MALIGNANT
  3. ETOPOSIDE. [Suspect]
     Active Substance: ETOPOSIDE
     Indication: LUNG NEOPLASM MALIGNANT

REACTIONS (2)
  - Refractory cytopenia with unilineage dysplasia [Recovered/Resolved]
  - Myelodysplastic syndrome [Recovered/Resolved]
